FAERS Safety Report 7122525-0 (Version None)
Quarter: 2010Q4

REPORT INFORMATION
  Report Type: 
  Country: None (occurrence: None)
  Receive Date: 20101122
  Receipt Date: 20101122
  Transmission Date: 20110411
  Serious: Yes (Other)
  Sender: FDA-Public Use
  Company Number: None

PATIENT
  Age: 71 Year
  Sex: Female
  Weight: 70.7611 kg

DRUGS (2)
  1. VIMOVO [Suspect]
     Indication: ARTHRALGIA
     Dosage: ONE TABLET TWICE A DAY PO
     Route: 048
     Dates: start: 20101105, end: 20101116
  2. VIMOVO [Suspect]
     Indication: HEADACHE
     Dosage: ONE TABLET TWICE A DAY PO
     Route: 048
     Dates: start: 20101105, end: 20101116

REACTIONS (2)
  - ABDOMINAL PAIN UPPER [None]
  - DYSPEPSIA [None]
